FAERS Safety Report 6933406-7 (Version None)
Quarter: 2010Q3

REPORT INFORMATION
  Report Type: 
  Country: None (occurrence: None)
  Receive Date: 20100820
  Receipt Date: 20100809
  Transmission Date: 20110219
  Serious: Yes (Hospitalization, Other)
  Sender: FDA-Public Use
  Company Number: US-ELI_LILLY_AND_COMPANY-US201004005500

PATIENT
  Sex: Female

DRUGS (13)
  1. FORTEO [Suspect]
     Indication: OSTEOPOROSIS
     Dosage: 20 UG, DAILY (1/D)
  2. FORTEO [Suspect]
     Dosage: 20 UG, DAILY (1/D)
  3. DRONEDARONE HCL [Concomitant]
  4. QUINAPRIL [Concomitant]
  5. METOPROLOL TARTRATE [Concomitant]
  6. SYNTHROID [Concomitant]
  7. LIPITOR [Concomitant]
  8. COUMADIN [Concomitant]
  9. ASPIRIN [Concomitant]
  10. VITAMIN D [Concomitant]
  11. CALCIUM [Concomitant]
  12. MAGNESIUM [Concomitant]
  13. ANTIHYPERTENSIVES [Concomitant]

REACTIONS (12)
  - ABDOMINAL PAIN UPPER [None]
  - ATRIAL FIBRILLATION [None]
  - BLOOD COUNT ABNORMAL [None]
  - CHOLELITHIASIS [None]
  - CONSTIPATION [None]
  - DEHYDRATION [None]
  - DYSGEUSIA [None]
  - HAEMATOCRIT DECREASED [None]
  - NAUSEA [None]
  - PANCREATITIS [None]
  - PYREXIA [None]
  - VIRAL INFECTION [None]
